FAERS Safety Report 10043467 (Version 1)
Quarter: 2014Q1

REPORT INFORMATION
  Report Type: Spontaneous
  Country: US (occurrence: US)
  Receive Date: 20140328
  Receipt Date: 20140328
  Transmission Date: 20141002
  Serious: No
  Sender: FDA-Public Use
  Company Number: US-PFIZER INC-2014086114

PATIENT
  Age: 33 Year
  Sex: Male
  Weight: 70.3 kg

DRUGS (3)
  1. ZOLOFT [Suspect]
     Indication: DEPRESSION
     Dosage: 200 MG, 1X/DAY
  2. GEODON [Suspect]
     Indication: BIPOLAR DISORDER
     Dosage: UNK
  3. SUBOXONE [Suspect]
     Indication: DRUG DEPENDENCE
     Dosage: UNK

REACTIONS (1)
  - Drug ineffective [Unknown]
